FAERS Safety Report 9306066 (Version 1)
Quarter: 2013Q2

REPORT INFORMATION
  Report Type: Spontaneous
  Country: US (occurrence: US)
  Receive Date: 20130523
  Receipt Date: 20130523
  Transmission Date: 20140414
  Serious: No
  Sender: FDA-Public Use
  Company Number: US-ASTRAZENECA-2013SE33691

PATIENT
  Age: 44 Year
  Sex: Female
  Weight: 93 kg

DRUGS (2)
  1. SYMBICORT [Suspect]
     Indication: ASTHMA
     Dosage: 160/4.5, 2 PUFFS, TWO TIMES A DAY
     Route: 055
     Dates: start: 2010
  2. UNKNOWN RESCUE INHALER [Concomitant]
     Indication: ASTHMA

REACTIONS (3)
  - Cough [Unknown]
  - Drug ineffective [Unknown]
  - Asthma [Unknown]
